FAERS Safety Report 5812629-4 (Version None)
Quarter: 2008Q3

REPORT INFORMATION
  Report Type: 
  Country: None (occurrence: None)
  Receive Date: 20080711
  Receipt Date: 20080627
  Transmission Date: 20090109
  Serious: Yes (Hospitalization)
  Sender: FDA-Public Use
  Company Number: 2008BI016899

PATIENT
  Age: 68 Year
  Sex: Female
  Weight: 166.9237 kg

DRUGS (6)
  1. AVONEX [Suspect]
     Indication: MULTIPLE SCLEROSIS
     Dosage: 30 UG; QW; IM, 30 UG; QW; IM, 30 UG; QW; IM
     Route: 030
     Dates: start: 20010401, end: 20030101
  2. AVONEX [Suspect]
     Indication: MULTIPLE SCLEROSIS
     Dosage: 30 UG; QW; IM, 30 UG; QW; IM, 30 UG; QW; IM
     Route: 030
     Dates: start: 20030101, end: 20060601
  3. AVONEX [Suspect]
     Indication: MULTIPLE SCLEROSIS
     Dosage: 30 UG; QW; IM, 30 UG; QW; IM, 30 UG; QW; IM
     Route: 030
     Dates: start: 20061001
  4. ATENOLOL [Concomitant]
  5. XANAX [Concomitant]
  6. TYLENOL [Concomitant]

REACTIONS (7)
  - BLADDER DISORDER [None]
  - CHILLS [None]
  - DIABETES MELLITUS [None]
  - HEARING IMPAIRED [None]
  - INSOMNIA [None]
  - PAIN IN EXTREMITY [None]
  - PANIC ATTACK [None]
